FAERS Safety Report 10101906 (Version 1)
Quarter: 2014Q2

REPORT INFORMATION
  Report Type: Spontaneous
  Country: US (occurrence: US)
  Receive Date: 20140424
  Receipt Date: 20140424
  Transmission Date: 20141212
  Serious: No
  Sender: FDA-Public Use
  Company Number: US-BAXTER-2014BAX018382

PATIENT
  Sex: Male

DRUGS (3)
  1. DIANEAL LOW CALCIUM [Suspect]
     Indication: RENAL FAILURE CHRONIC
     Route: 033
     Dates: start: 2010
  2. DIANEAL LOW CALCIUM (ULTRABAG) [Suspect]
     Indication: RENAL FAILURE CHRONIC
     Route: 033
     Dates: start: 2010
  3. DIANEAL LOW CALCIUM (ULTRABAG) [Suspect]
     Indication: RENAL FAILURE CHRONIC
     Route: 033
     Dates: start: 201404

REACTIONS (2)
  - Peripheral swelling [Recovering/Resolving]
  - Weight increased [Recovering/Resolving]
